FAERS Safety Report 5372576-1 (Version None)
Quarter: 2007Q2

REPORT INFORMATION
  Report Type: 
  Country: None (occurrence: None)
  Receive Date: 20070627
  Receipt Date: 20070615
  Transmission Date: 20071010
  Serious: Yes (Other)
  Sender: FDA-Public Use
  Company Number: GB-SHR-GB-2007-022932

PATIENT
  Age: 51 Year
  Sex: Female

DRUGS (1)
  1. MAGNEVIST [Suspect]
     Dosage: 40 ML, 1 DOSE
     Dates: start: 20060905, end: 20060905

REACTIONS (1)
  - NEPHROGENIC FIBROSING DERMOPATHY [None]
